FAERS Safety Report 25802271 (Version 1)
Quarter: 2025Q3

REPORT INFORMATION
  Report Type: Spontaneous
  Country: CA (occurrence: CA)
  Receive Date: 20250915
  Receipt Date: 20250915
  Transmission Date: 20251020
  Serious: Yes (Life-Threatening, Other)
  Sender: ALKEM
  Company Number: CA-ALKEM LABORATORIES LIMITED-CA-ALKEM-2025-09905

PATIENT
  Age: 35 Year
  Sex: Male

DRUGS (1)
  1. VANCOMYCIN [Suspect]
     Active Substance: VANCOMYCIN
     Indication: Clostridium difficile infection
     Route: 048

REACTIONS (4)
  - Laryngeal obstruction [Recovering/Resolving]
  - Anaphylactic reaction [Unknown]
  - Urticaria [Recovering/Resolving]
  - Drug hypersensitivity [Unknown]
